FAERS Safety Report 8541125 (Version 2)
Quarter: 2013Q1

REPORT INFORMATION
  Report Type: Spontaneous
  Country: AR (occurrence: AR)
  Receive Date: 20120502
  Receipt Date: 20130124
  Transmission Date: 20140127
  Serious: Yes (Other)
  Sender: FDA-Public Use
  Company Number: AR-ROCHE-1064150

PATIENT
  Sex: Female

DRUGS (2)
  1. XOLAIR [Suspect]
     Indication: ASTHMA
     Route: 065
     Dates: start: 201106, end: 201110
  2. XOLAIR [Suspect]
     Route: 065
     Dates: start: 201111, end: 201203

REACTIONS (15)
  - Pneumonia [Recovering/Resolving]
  - Systemic lupus erythematosus [Recovering/Resolving]
  - Pain [Recovering/Resolving]
  - Pyrexia [Recovering/Resolving]
  - Fatigue [Recovering/Resolving]
  - Alopecia [Recovering/Resolving]
  - Dry skin [Recovering/Resolving]
  - Oedema peripheral [Recovering/Resolving]
  - Arthralgia [Recovering/Resolving]
  - Pulmonary hypertension [Recovering/Resolving]
  - Mitral valve disease mixed [Recovering/Resolving]
  - Hepatic enzyme increased [Recovering/Resolving]
  - Diabetes mellitus [Recovering/Resolving]
  - Malaise [Recovering/Resolving]
  - Rash [Recovering/Resolving]
